FAERS Safety Report 5520614-5 (Version None)
Quarter: 2007Q4

REPORT INFORMATION
  Report Type: 
  Country: None (occurrence: None)
  Receive Date: 20071119
  Receipt Date: 20071102
  Transmission Date: 20080405
  Serious: Yes (Other)
  Sender: FDA-Public Use
  Company Number: GB-BRISTOL-MYERS SQUIBB COMPANY-13957634

PATIENT
  Age: 81 Year
  Sex: Female

DRUGS (4)
  1. ERBITUX [Suspect]
     Indication: SQUAMOUS CELL CARCINOMA
     Dosage: PATIENT COMPLETED 8 CYCLES; STERNGTH-5MG/ML
     Route: 042
  2. RADIATION THERAPY [Suspect]
  3. MAGNESIUM SULFATE [Concomitant]
     Indication: DYSPHAGIA
     Route: 048
  4. LANSOPRAZOLE [Concomitant]

REACTIONS (1)
  - VOCAL CORD PARESIS [None]
